FAERS Safety Report 6581100-7 (Version None)
Quarter: 2010Q1

REPORT INFORMATION
  Report Type: 
  Country: None (occurrence: None)
  Receive Date: 20100215
  Receipt Date: 20100204
  Transmission Date: 20100710
  Serious: Yes (Other)
  Sender: FDA-Public Use
  Company Number: PHHY2009BR39053

PATIENT
  Sex: Female

DRUGS (3)
  1. FORASEQ [Suspect]
     Indication: ASTHMA
     Dosage: 12/400 MCG
  2. FERROUS SULFATE TAB [Concomitant]
  3. VITAMINS [Concomitant]

REACTIONS (4)
  - ASTHMA [None]
  - CAESAREAN SECTION [None]
  - DRUG EXPOSURE DURING PREGNANCY [None]
  - SUPPRESSED LACTATION [None]
